FAERS Safety Report 5086245-9 (Version None)
Quarter: 2006Q3

REPORT INFORMATION
  Report Type: 
  Country: None (occurrence: None)
  Receive Date: 20060703
  Receipt Date: 20060224
  Transmission Date: 20061208
  Serious: No
  Sender: FDA-Public Use
  Company Number: 2006S1001664

PATIENT
  Age: 56 Year
  Sex: Male
  Weight: 83.0083 kg

DRUGS (3)
  1. CLOZAPINE [Suspect]
     Indication: SCHIZOAFFECTIVE DISORDER
     Dosage: 300 MG; HS; ORAL
     Route: 048
     Dates: start: 20051201
  2. VALPROATE SODIUM [Concomitant]
  3. BENZATROPINE [Concomitant]

REACTIONS (1)
  - GRANULOCYTOPENIA [None]
